FAERS Safety Report 8607006 (Version 4)
Quarter: 2013Q4

REPORT INFORMATION
  Report Type: Spontaneous
  Country: US (occurrence: US)
  Receive Date: 20120611
  Receipt Date: 20131129
  Transmission Date: 20140711
  Serious: Yes (Hospitalization, Other)
  Sender: FDA-Public Use
  Company Number: US-ASTRAZENECA-2012SE35335

PATIENT
  Age: 70 Year
  Sex: Female
  Weight: 74.4 kg

DRUGS (31)
  1. NEXIUM [Suspect]
     Indication: GASTROOESOPHAGEAL REFLUX DISEASE
     Route: 048
     Dates: start: 2001
  2. NEXIUM [Suspect]
     Indication: GASTROOESOPHAGEAL REFLUX DISEASE
     Route: 048
     Dates: start: 20101130
  3. NEXIUM [Suspect]
     Indication: GASTROOESOPHAGEAL REFLUX DISEASE
     Route: 048
     Dates: end: 201301
  4. NEXIUM [Suspect]
     Indication: GASTROOESOPHAGEAL REFLUX DISEASE
     Route: 048
     Dates: start: 20120131
  5. OMEPRAZOLE [Suspect]
     Indication: GASTROOESOPHAGEAL REFLUX DISEASE
     Route: 048
     Dates: start: 2001
  6. OMEPRAZOLE [Suspect]
     Indication: GASTROOESOPHAGEAL REFLUX DISEASE
     Route: 048
     Dates: start: 20101130
  7. DICYCLOMINE [Concomitant]
     Dates: start: 20110115
  8. PROTONIX [Concomitant]
     Indication: GASTROOESOPHAGEAL REFLUX DISEASE
     Dates: start: 20110115
  9. PREVACID [Concomitant]
     Indication: GASTROOESOPHAGEAL REFLUX DISEASE
     Dates: start: 20110115
  10. ACIPHEX [Concomitant]
     Indication: GASTROOESOPHAGEAL REFLUX DISEASE
     Dates: start: 20110115
  11. ZANTAC [Concomitant]
  12. TAGAMET [Concomitant]
  13. MYLANTA [Concomitant]
  14. ALKA SELTZER [Concomitant]
  15. PREMARIN [Concomitant]
  16. TYLENOL [Concomitant]
     Dosage: EXTRA STRENGTH
  17. MUCUS RELIEF [Concomitant]
     Dosage: EXTRA STRENGTH
  18. ASPIRIN [Concomitant]
  19. PROMETHAZINE [Concomitant]
  20. PRAVASTATIN [Concomitant]
  21. TRAZODONE [Concomitant]
     Dates: start: 20100330
  22. METFORMIN ER [Concomitant]
     Dosage: 24 HRS
  23. AVAPRO [Concomitant]
     Dates: start: 20110604
  24. ACTONEL [Concomitant]
     Dates: start: 20110404
  25. DIPHENOXYLATE/ ATROPINE [Concomitant]
     Dates: start: 20100916
  26. AVALIDE [Concomitant]
     Dosage: 300/ 25 MG
     Dates: start: 20101229
  27. METOPROLOL SUCCINATE [Concomitant]
  28. METOCLOPRAMIDE [Concomitant]
     Dates: start: 20111207
  29. FERROUS SULFATE [Concomitant]
     Dates: start: 20110531
  30. HYDROCHLOROTHIAZIDE [Concomitant]
     Dates: start: 20110804
  31. AMLODIPINE BESYLATE [Concomitant]
     Dates: start: 20120504

REACTIONS (14)
  - Intervertebral disc protrusion [Unknown]
  - Headache [Unknown]
  - Chest pain [Unknown]
  - Arthropathy [Unknown]
  - Back disorder [Unknown]
  - Gastric disorder [Unknown]
  - Osteoporosis [Unknown]
  - Bone disorder [Unknown]
  - Multiple fractures [Unknown]
  - Cardiac disorder [Unknown]
  - Arthritis [Unknown]
  - Bone pain [Unknown]
  - Cataract [Unknown]
  - Diabetes mellitus [Unknown]
